FAERS Safety Report 9080137 (Version 2)
Quarter: 2014Q2

REPORT INFORMATION
  Report Type: Spontaneous
  Country: PL (occurrence: PL)
  Receive Date: 20130218
  Receipt Date: 20140626
  Transmission Date: 20141212
  Serious: Yes (Hospitalization, Other)
  Sender: FDA-Public Use
  Company Number: PHHY2013PL014028

PATIENT
  Age: 31 Year
  Sex: Female

DRUGS (7)
  1. DIAZEPAM [Suspect]
     Indication: INSOMNIA
     Dosage: 2.5 TO 5MG PRIOR TO SLEEP
  2. DIAZEPAM [Suspect]
     Dosage: 10 DF, UNK
  3. HYDROXYCARBAMIDE [Suspect]
     Indication: ESSENTIAL THROMBOCYTHAEMIA
     Dosage: 500 MG, UNK
  4. HYDROXYCARBAMIDE [Suspect]
     Dosage: 15 DF, UNK
  5. ALCOHOL [Suspect]
  6. ACETYLSALICYLIC ACID [Concomitant]
     Indication: ESSENTIAL THROMBOCYTHAEMIA
     Dosage: 75 MG, UNK
  7. OMEPRAZOLE [Concomitant]
     Indication: GASTROOESOPHAGEAL REFLUX DISEASE

REACTIONS (6)
  - Suicide attempt [Recovered/Resolved]
  - White blood cell count decreased [Unknown]
  - Macrocytosis [Unknown]
  - Depressed mood [Recovered/Resolved]
  - Restlessness [Recovered/Resolved]
  - Intentional overdose [Unknown]
